FAERS Safety Report 4541230-8 (Version None)
Quarter: 2004Q4

REPORT INFORMATION
  Report Type: 
  Country: None (occurrence: None)
  Receive Date: 20041228
  Receipt Date: 20041210
  Transmission Date: 20050328
  Serious: Yes (Other)
  Sender: FDA-Public Use
  Company Number: CEL-2004-02148-ROC

PATIENT
  Sex: Male

DRUGS (1)
  1. ZAROXOLYN [Suspect]
     Indication: FLUID RETENTION
     Dates: start: 20041101

REACTIONS (2)
  - BREAST MASS [None]
  - BREAST SWELLING [None]
